FAERS Safety Report 12099599 (Version 1)
Quarter: 2016Q1

REPORT INFORMATION
  Report Type: Spontaneous
  Country: US (occurrence: None)
  Receive Date: 20160219
  Receipt Date: 20160219
  Transmission Date: 20160526
  Serious: Yes (Disabling)
  Sender: FDA-Public Use
  Company Number: None

PATIENT
  Age: 96 Year
  Sex: Female
  Weight: 46.72 kg

DRUGS (8)
  1. TRANDOLAPRIL. [Concomitant]
     Active Substance: TRANDOLAPRIL
  2. DILTIAZEM [Concomitant]
     Active Substance: DILTIAZEM
  3. VITAMIN B12 [Concomitant]
     Active Substance: CYANOCOBALAMIN
  4. CAL- MAG PLUS [Concomitant]
  5. COQ10 [Concomitant]
     Active Substance: UBIDECARENONE
  6. CEFUROXIME. [Suspect]
     Active Substance: CEFUROXIME
     Indication: URINARY TRACT INFECTION
     Dosage: 1 PILL TWICE DAILY TAKEN BY MOUTH
     Route: 048
     Dates: start: 20160204, end: 20160213
  7. SYNTHROID [Concomitant]
     Active Substance: LEVOTHYROXINE SODIUM
  8. TRIAMTERENE AND HYDROCHLOROTHIAZIDE [Concomitant]
     Active Substance: HYDROCHLOROTHIAZIDE\TRIAMTERENE

REACTIONS (11)
  - Eructation [None]
  - Cough [None]
  - Neck pain [None]
  - Abdominal distension [None]
  - Asthenia [None]
  - Dyspepsia [None]
  - Decreased appetite [None]
  - Deafness [None]
  - Dysgeusia [None]
  - Back pain [None]
  - Tremor [None]

NARRATIVE: CASE EVENT DATE: 20160204
